FAERS Safety Report 7393958-2 (Version None)
Quarter: 2011Q2

REPORT INFORMATION
  Report Type: 
  Country: None (occurrence: None)
  Receive Date: 20110405
  Receipt Date: 20100415
  Transmission Date: 20111010
  Serious: No
  Sender: FDA-Public Use
  Company Number: US-AMGEN-KDL406567

PATIENT
  Age: 81 Year
  Sex: Male

DRUGS (6)
  1. ANTIHYPERTENSIVE MEDICATION NOS [Concomitant]
     Dosage: UNK UNK, UNK
  2. FLUDARABINE PHOSPHATE [Concomitant]
  3. SIMVASTATIN [Concomitant]
     Dosage: UNK UNK, UNK
  4. NEULASTA [Suspect]
     Indication: CHEMOTHERAPY
     Dosage: 4.3 MG, UNK
  5. ACYCLOVIR [Concomitant]
     Dosage: UNK UNK, UNK
  6. CYCLOPHOSPHAMIDE [Concomitant]

REACTIONS (1)
  - THERAPEUTIC RESPONSE DECREASED [None]
